FAERS Safety Report 16279700 (Version 2)
Quarter: 2019Q2

REPORT INFORMATION
  Report Type: Report from Study
  Country: PT (occurrence: PT)
  Receive Date: 20190507
  Receipt Date: 20190606
  Transmission Date: 20190711
  Serious: Yes (Death)
  Sender: FDA-Public Use
  Company Number: PT-EMD SERONO-9089479

PATIENT
  Age: 40 Year
  Sex: Male

DRUGS (1)
  1. REBIF [Suspect]
     Active Substance: INTERFERON BETA-1A
     Indication: MULTIPLE SCLEROSIS
     Dosage: (4 CARTUCHOS)
     Route: 058
     Dates: start: 20130813

REACTIONS (2)
  - Asphyxia [Fatal]
  - Foreign body in respiratory tract [Fatal]

NARRATIVE: CASE EVENT DATE: 20190418
